FAERS Safety Report 6881990-4 (Version None)
Quarter: 2010Q3

REPORT INFORMATION
  Report Type: 
  Country: None (occurrence: None)
  Receive Date: 20100727
  Receipt Date: 20100720
  Transmission Date: 20110219
  Serious: Yes (Hospitalization)
  Sender: FDA-Public Use
  Company Number: ACO_01230_2010

PATIENT
  Sex: Female
  Weight: 136.0791 kg

DRUGS (2)
  1. AMPYRA [Suspect]
     Indication: PRODUCT USED FOR UNKNOWN INDICATION
     Dosage: DF
     Dates: start: 20100514, end: 20100516
  2. TYSABRI [Suspect]
     Indication: PRODUCT USED FOR UNKNOWN INDICATION
     Dosage: 3 INFUISIONS INTRAVENOUS
     Route: 042
     Dates: start: 20100514

REACTIONS (5)
  - ABASIA [None]
  - ABDOMINAL PAIN UPPER [None]
  - HYPOAESTHESIA [None]
  - LIMB IMMOBILISATION [None]
  - MULTIPLE SCLEROSIS RELAPSE [None]
